FAERS Safety Report 12193523 (Version 1)
Quarter: 2016Q1

REPORT INFORMATION
  Report Type: Spontaneous
  Country: US (occurrence: US)
  Receive Date: 20160320
  Receipt Date: 20160320
  Transmission Date: 20160526
  Serious: No
  Sender: FDA-Public Use
  Company Number: US-WARNER CHILCOTT, LLC-1049340

PATIENT
  Age: 65 Year
  Sex: Female
  Weight: 69.14 kg

DRUGS (11)
  1. ALTACE [Concomitant]
     Active Substance: RAMIPRIL
  2. SERMORELIN [Concomitant]
     Active Substance: SERMORELIN
  3. ESTRACE [Suspect]
     Active Substance: ESTRADIOL
     Indication: VAGINAL DISORDER
     Route: 067
  4. SYMAX [Concomitant]
     Active Substance: HYOSCYAMINE SULFATE
  5. PRILOSEC [Concomitant]
     Active Substance: OMEPRAZOLE MAGNESIUM
  6. CALCIUM 600 PLUS VITAMIN D [Concomitant]
     Active Substance: CALCIUM CARBONATE\VITAMIN D
  7. REGLAN [Concomitant]
     Active Substance: METOCLOPRAMIDE HYDROCHLORIDE
  8. ULTRAM [Concomitant]
     Active Substance: TRAMADOL HYDROCHLORIDE
  9. CREON [Concomitant]
     Active Substance: PANCRELIPASE AMYLASE\PANCRELIPASE LIPASE\PANCRELIPASE PROTEASE
  10. OXYCODONE [Concomitant]
     Active Substance: OXYCODONE
  11. CYTOTEC [Concomitant]
     Active Substance: MISOPROSTOL

REACTIONS (2)
  - Vaginal disorder [Unknown]
  - Condition aggravated [Unknown]
